FAERS Safety Report 22319114 (Version 3)
Quarter: 2023Q2

REPORT INFORMATION
  Report Type: Spontaneous
  Country: LV (occurrence: LV)
  Receive Date: 20230515
  Receipt Date: 20230522
  Transmission Date: 20230722
  Serious: Yes (Other)
  Sender: FDA-Public Use
  Company Number: LV-MLMSERVICE-20230501-4261510-1

PATIENT
  Age: 13 Year
  Sex: Female

DRUGS (12)
  1. METHYLPREDNISOLONE [Suspect]
     Active Substance: METHYLPREDNISOLONE
     Dosage: 32 MG X 1/DAY FOR THE FIRST 2 WEEKS, WHICH WAS THEN REDUCED.
     Dates: start: 2014, end: 2014
  2. METHYLPREDNISOLONE [Suspect]
     Active Substance: METHYLPREDNISOLONE
     Dosage: REDUCED
     Dates: start: 2014, end: 2014
  3. METHYLPREDNISOLONE [Suspect]
     Active Substance: METHYLPREDNISOLONE
     Dosage: 6 MG, 1X/DAY
     Dates: start: 2014, end: 2014
  4. METHYLPREDNISOLONE [Suspect]
     Active Substance: METHYLPREDNISOLONE
     Dosage: 8 MG, ALTERNATE DAY
  5. METHYLPREDNISOLONE [Suspect]
     Active Substance: METHYLPREDNISOLONE
     Dosage: 16 MG, 1X/DAY GREATER THAN 8 MG-5M
     Dates: start: 2014, end: 2014
  6. METHYLPREDNISOLONE [Suspect]
     Active Substance: METHYLPREDNISOLONE
     Dosage: 16 MG, ALTERNATE DAY
  7. METHYLPREDNISOLONE [Suspect]
     Active Substance: METHYLPREDNISOLONE
     Dosage: 5 MG, 1X/DAY
     Dates: start: 2014, end: 2014
  8. METHYLPREDNISOLONE [Suspect]
     Active Substance: METHYLPREDNISOLONE
     Dosage: 4 MG, 1X/DAY
     Dates: start: 2014, end: 2014
  9. METHYLPREDNISOLONE [Suspect]
     Active Substance: METHYLPREDNISOLONE
     Dosage: 15 MG, WEEKLY
     Dates: start: 2014, end: 2014
  10. METHYLPREDNISOLONE [Suspect]
     Active Substance: METHYLPREDNISOLONE
     Dosage: 12 MG, ALTERNATE DAY
  11. AZATHIOPRINE [Concomitant]
     Active Substance: AZATHIOPRINE
     Indication: Immunosuppression
     Dosage: 100 MG
  12. METHOTREXATE [Concomitant]
     Active Substance: METHOTREXATE
     Indication: Immunosuppression
     Dosage: UNK

REACTIONS (2)
  - Cushing^s syndrome [Unknown]
  - Furuncle [Unknown]

NARRATIVE: CASE EVENT DATE: 20140101
